FAERS Safety Report 18984713 (Version 1)
Quarter: 2021Q1

REPORT INFORMATION
  Report Type: Spontaneous
  Country: US (occurrence: US)
  Receive Date: 20210309
  Receipt Date: 20210309
  Transmission Date: 20210420
  Serious: No
  Sender: FDA-Public Use
  Company Number: US-CELLTRION INC.-2021US002108

PATIENT

DRUGS (1)
  1. TRUXIMA [Suspect]
     Active Substance: RITUXIMAB-ABBS
     Indication: MANTLE CELL LYMPHOMA
     Dosage: 788 MG, Q 56 DAYS (WITH THERAPY SCHEDULED ^THROUGH 31 DECEMBER 2021^)
     Dates: start: 20210216

REACTIONS (1)
  - Off label use [Unknown]
